FAERS Safety Report 11991608 (Version 2)
Quarter: 2016Q2

REPORT INFORMATION
  Report Type: Spontaneous
  Country: US (occurrence: US)
  Receive Date: 20160203
  Receipt Date: 20160410
  Transmission Date: 20160815
  Serious: No
  Sender: FDA-Public Use
  Company Number: US-JNJFOC-20160102418

PATIENT
  Age: 25 Year
  Sex: Male

DRUGS (1)
  1. INVEGA [Suspect]
     Active Substance: PALIPERIDONE
     Indication: LIBIDO INCREASED
     Route: 048

REACTIONS (6)
  - Off label use [Unknown]
  - Product use issue [Unknown]
  - Mania [Recovered/Resolved]
  - Excessive masturbation [Not Recovered/Not Resolved]
  - Insomnia [Unknown]
  - Paramnesia [Not Recovered/Not Resolved]

NARRATIVE: CASE EVENT DATE: 201512
